FAERS Safety Report 4358818-X (Version None)
Quarter: 2004Q2

REPORT INFORMATION
  Report Type: 
  Country: None (occurrence: None)
  Receive Date: 20040512
  Receipt Date: 20040504
  Transmission Date: 20050107
  Serious: Yes (Other)
  Sender: FDA-Public Use
  Company Number: 2004-05-0207

PATIENT
  Age: 61 Year
  Sex: Female

DRUGS (5)
  1. INTRON A [Suspect]
     Indication: CARCINOID TUMOUR
     Dosage: SEE IMAGE
     Route: 058
     Dates: start: 20010102
  2. INTRON A [Suspect]
     Indication: CARCINOID TUMOUR
     Dosage: SEE IMAGE
     Route: 058
     Dates: start: 20010102
  3. MAREVAN [Concomitant]
  4. FUROSEMIDE [Concomitant]
  5. ACETAMINOPHEN [Concomitant]

REACTIONS (2)
  - DEAFNESS UNILATERAL [None]
  - TINNITUS [None]
